FAERS Safety Report 4423961-3 (Version None)
Quarter: 2004Q3

REPORT INFORMATION
  Report Type: 
  Country: None (occurrence: None)
  Receive Date: 20040812
  Receipt Date: 20040805
  Transmission Date: 20050211
  Serious: Yes (Other)
  Sender: FDA-Public Use
  Company Number: US-BRISTOL-MYERS SQUIBB COMPANY-12662490

PATIENT
  Age: 50 Year
  Sex: Female

DRUGS (4)
  1. ESTRACE [Suspect]
     Indication: HORMONE REPLACEMENT THERAPY
     Dates: start: 19940101, end: 19980101
  2. PREMARIN [Suspect]
     Indication: HORMONE REPLACEMENT THERAPY
  3. PROVERA [Suspect]
     Indication: HORMONE REPLACEMENT THERAPY
     Dates: start: 19940101, end: 19980101
  4. MEDROXYPROGESTERONE ACETATE [Suspect]
     Indication: HORMONE REPLACEMENT THERAPY
     Dates: start: 19940101, end: 19980101

REACTIONS (1)
  - OVARIAN CANCER [None]
